FAERS Safety Report 8825650 (Version 1)
Quarter: 2012Q4

REPORT INFORMATION
  Report Type: Report from Study
  Country: US (occurrence: US)
  Receive Date: 20121004
  Receipt Date: 20121004
  Transmission Date: 20130627
  Serious: Yes (Other)
  Sender: FDA-Public Use
  Company Number: US-ABBOTT-12P-163-0988701-00

PATIENT
  Age: 45 Year
  Sex: Male
  Weight: 101.7 kg

DRUGS (1)
  1. HUMIRA [Suspect]
     Indication: RHEUMATOID ARTHRITIS
     Dates: start: 201105

REACTIONS (3)
  - Grand mal convulsion [Not Recovered/Not Resolved]
  - Convulsion [Unknown]
  - Convulsion [Unknown]
